FAERS Safety Report 13374000 (Version 1)
Quarter: 2017Q1

REPORT INFORMATION
  Report Type: Spontaneous
  Country: US (occurrence: US)
  Receive Date: 20170327
  Receipt Date: 20170327
  Transmission Date: 20170429
  Serious: Yes (Other)
  Sender: FDA-Public Use
  Company Number: US-JNJFOC-20170321638

PATIENT
  Age: 73 Year
  Sex: Male
  Weight: 112.49 kg

DRUGS (13)
  1. METFORMIN [Concomitant]
     Active Substance: METFORMIN HYDROCHLORIDE
     Route: 065
  2. REMICADE [Suspect]
     Active Substance: INFLIXIMAB
     Indication: PSORIATIC ARTHROPATHY
     Route: 042
  3. ACETAMINOPHEN. [Concomitant]
     Active Substance: ACETAMINOPHEN
     Route: 048
     Dates: start: 20160606
  4. ZYRTEC [Concomitant]
     Active Substance: CETIRIZINE HYDROCHLORIDE
     Route: 048
     Dates: start: 20160606
  5. REMICADE [Suspect]
     Active Substance: INFLIXIMAB
     Indication: PSORIATIC ARTHROPATHY
     Route: 042
     Dates: start: 20160606
  6. ATORVASTATIN [Concomitant]
     Active Substance: ATORVASTATIN
     Route: 048
  7. FLUOXETINE [Concomitant]
     Active Substance: FLUOXETINE HYDROCHLORIDE
     Route: 048
  8. LANTUS [Concomitant]
     Active Substance: INSULIN GLARGINE
     Dosage: 35 UNITS TWICE A DAY
     Route: 058
  9. NITROSTAT [Concomitant]
     Active Substance: NITROGLYCERIN
     Indication: CHEST PAIN
     Route: 060
  10. REMICADE [Suspect]
     Active Substance: INFLIXIMAB
     Indication: PSORIATIC ARTHROPATHY
     Route: 042
     Dates: start: 20140319
  11. LOSARTAN. [Concomitant]
     Active Substance: LOSARTAN
     Route: 065
  12. VITAMIN D3 [Concomitant]
     Active Substance: CHOLECALCIFEROL
     Route: 048
  13. ASPIRIN. [Concomitant]
     Active Substance: ASPIRIN
     Route: 048

REACTIONS (16)
  - Chronic kidney disease [Unknown]
  - Nasal congestion [Unknown]
  - Hyperkeratosis [Unknown]
  - Ischaemic cardiomyopathy [Unknown]
  - Temperature intolerance [Unknown]
  - Musculoskeletal stiffness [Unknown]
  - Gastrooesophageal reflux disease [Unknown]
  - Anaemia [Unknown]
  - Psoriasis [Unknown]
  - Peripheral vascular disorder [Unknown]
  - Dupuytren^s contracture [Unknown]
  - Foot deformity [Unknown]
  - Synovial rupture [Unknown]
  - Increased tendency to bruise [Unknown]
  - Type 2 diabetes mellitus [Unknown]
  - Mobility decreased [Unknown]

NARRATIVE: CASE EVENT DATE: 20170130
